FAERS Safety Report 8523318-X (Version None)
Quarter: 2012Q3

REPORT INFORMATION
  Report Type: 
  Country: None (occurrence: None)
  Receive Date: 20120720
  Receipt Date: 20100913
  Transmission Date: 20120928
  Serious: Yes (Life-Threatening, Hospitalization, Other)
  Sender: FDA-Public Use
  Company Number: US-BAYER-201014758NA

PATIENT
  Age: 26 Year
  Sex: Female
  Weight: 55 kg

DRUGS (7)
  1. YAZ [Suspect]
     Indication: ACNE
     Dosage: AS USED DOSE: UNK
     Route: 048
     Dates: start: 20070119, end: 20070201
  2. YAZ [Suspect]
     Indication: ORAL CONTRACEPTION
  3. ADVIL [Concomitant]
     Route: 065
     Dates: end: 20070215
  4. YASMIN [Suspect]
     Indication: ORAL CONTRACEPTION
     Dosage: UNK
     Dates: start: 20070101
  5. YAZ [Suspect]
     Indication: MENSTRUATION IRREGULAR
  6. ANTIBIOTICS [Concomitant]
     Route: 065
  7. FOLIC ACID [Concomitant]
     Dosage: UNK UNK, UNK
     Route: 065
     Dates: start: 19800721

REACTIONS (15)
  - PULMONARY EMBOLISM [None]
  - DYSPNOEA [None]
  - ACUTE CHEST SYNDROME [None]
  - RESPIRATORY FAILURE [None]
  - FATIGUE [None]
  - DYSPHAGIA [None]
  - CHEST PAIN [None]
  - ATELECTASIS [None]
  - ASTHENIA [None]
  - PULMONARY FUNCTION TEST DECREASED [None]
  - ACUTE RESPIRATORY DISTRESS SYNDROME [None]
  - LARYNGEAL GRANULOMA [None]
  - PAIN [None]
  - OROPHARYNGEAL PAIN [None]
  - HYPOXIA [None]
